FAERS Safety Report 7780938-8 (Version None)
Quarter: 2011Q3

REPORT INFORMATION
  Report Type: 
  Country: None (occurrence: None)
  Receive Date: 20110927
  Receipt Date: 20110926
  Transmission Date: 20111222
  Serious: Yes (Other)
  Sender: FDA-Public Use
  Company Number: US-PFIZER INC-2011199115

PATIENT

DRUGS (1)
  1. DILANTIN KAPSEAL [Suspect]
     Dosage: 100 MG, UNK
     Route: 048
     Dates: start: 20030801

REACTIONS (1)
  - STEVENS-JOHNSON SYNDROME [None]
